FAERS Safety Report 24353076 (Version 1)
Quarter: 2024Q3

REPORT INFORMATION
  Report Type: Report from Study
  Country: KR (occurrence: KR)
  Receive Date: 20240923
  Receipt Date: 20240923
  Transmission Date: 20241016
  Serious: No
  Sender: ROCHE
  Company Number: KR-ROCHE-3464570

PATIENT
  Age: 48 Year

DRUGS (5)
  1. TRASTUZUMAB [Suspect]
     Active Substance: TRASTUZUMAB
     Indication: Salivary gland cancer
     Route: 042
     Dates: start: 20230901, end: 20230901
  2. TRASTUZUMAB [Suspect]
     Active Substance: TRASTUZUMAB
     Indication: Head and neck cancer
     Dosage: SUBSEQUENT DOSES OF TRASTUZUMAB WERE RECEIVED ON 13/OCT/2023, 10/NOV/223, 01/DEC/2023, 22/DEC/2023,
     Route: 042
     Dates: start: 20230922, end: 20230922
  3. PERTUZUMAB [Suspect]
     Active Substance: PERTUZUMAB
     Indication: Salivary gland cancer
     Route: 042
     Dates: start: 20230901, end: 20230901
  4. PERTUZUMAB [Suspect]
     Active Substance: PERTUZUMAB
     Indication: Head and neck cancer
     Dosage: SUBSEQUENT DOSES OF PERTUZUMAB WERE RECEIVED ON 13/OCT/2023, 10/NOV/223, 01/DEC/2023, 22/DEC/2023, 1
     Route: 042
     Dates: start: 20230922, end: 20230922
  5. METOCLOPRAMIDE HYDROCHLORIDE [Suspect]
     Active Substance: METOCLOPRAMIDE HYDROCHLORIDE
     Indication: Head and neck cancer
     Route: 065

REACTIONS (4)
  - Influenza like illness [Recovered/Resolved]
  - Asthenia [Recovered/Resolved]
  - Nausea [Recovered/Resolved]
  - Vomiting [Recovered/Resolved]

NARRATIVE: CASE EVENT DATE: 20231101
